FAERS Safety Report 19374934 (Version 1)
Quarter: 2021Q2

REPORT INFORMATION
  Report Type: Spontaneous
  Country: US (occurrence: US)
  Receive Date: 20210604
  Receipt Date: 20210604
  Transmission Date: 20210717
  Serious: No
  Sender: FDA-Public Use
  Company Number: US-CELGENEUS-USA-20210507550

PATIENT
  Age: 48 Year
  Sex: Female

DRUGS (2)
  1. ZEPOSIA [Suspect]
     Active Substance: OZANIMOD HYDROCHLORIDE
     Dosage: .92 MILLIGRAM; MAINT
     Route: 048
     Dates: start: 20210523
  2. ZEPOSIA [Suspect]
     Active Substance: OZANIMOD HYDROCHLORIDE
     Indication: MULTIPLE SCLEROSIS RELAPSE
     Dosage: TITRATION BLISTER PACK
     Route: 048
     Dates: start: 20210516, end: 20210522

REACTIONS (2)
  - Bundle branch block right [Not Recovered/Not Resolved]
  - Muscle spasms [Not Recovered/Not Resolved]

NARRATIVE: CASE EVENT DATE: 20210523
